FAERS Safety Report 8044470-9 (Version None)
Quarter: 2012Q1

REPORT INFORMATION
  Report Type: 
  Country: None (occurrence: None)
  Receive Date: 20120113
  Receipt Date: 20120109
  Transmission Date: 20120608
  Serious: Yes (Other)
  Sender: FDA-Public Use
  Company Number: IT-JNJFOC-20111200070

PATIENT
  Sex: Male

DRUGS (4)
  1. GALANTAMINE HYDROBROMIDE [Suspect]
     Indication: PRODUCT USED FOR UNKNOWN INDICATION
     Route: 048
     Dates: start: 20111128, end: 20111128
  2. ZERINOL [Suspect]
     Indication: PRODUCT USED FOR UNKNOWN INDICATION
     Route: 048
     Dates: start: 20111128, end: 20111128
  3. AMOXICILLIN AND CLAVULANATE POTASSIUM [Suspect]
     Indication: PRODUCT USED FOR UNKNOWN INDICATION
     Route: 048
  4. VENLAFAXINE [Suspect]
     Indication: PRODUCT USED FOR UNKNOWN INDICATION
     Route: 048
     Dates: start: 20111128, end: 20111128

REACTIONS (3)
  - SELF INJURIOUS BEHAVIOUR [None]
  - MULTIPLE DRUG OVERDOSE INTENTIONAL [None]
  - VOMITING [None]
